FAERS Safety Report 21797734 (Version 1)
Quarter: 2022Q4

REPORT INFORMATION
  Report Type: Spontaneous
  Country: IN (occurrence: IN)
  Receive Date: 20221230
  Receipt Date: 20221230
  Transmission Date: 20230113
  Serious: Yes (Other)
  Sender: FDA-Public Use
  Company Number: IN-STERISCIENCE B.V.-2022-ST-000458

PATIENT
  Sex: Female
  Weight: .8 kg

DRUGS (14)
  1. METOPROLOL [Suspect]
     Active Substance: METOPROLOL
     Indication: Product used for unknown indication
     Dosage: PATIENT MOTHER DOSE WAS 10MG EVERY 24 HOURS
     Route: 064
  2. ONDANSETRON [Suspect]
     Active Substance: ONDANSETRON
     Indication: Product used for unknown indication
     Dosage: PATIENT MOTHER DOSE WAS 4 MILLIGRAM INJECTION
     Route: 064
  3. BUPIVACAINE [Suspect]
     Active Substance: BUPIVACAINE
     Indication: Product used for unknown indication
     Dosage: PATIENT MOTHER DOSE WAS 0.5% BUPIVACAINE 1.5MILLILITRE
     Route: 064
  4. BUPIVACAINE [Suspect]
     Active Substance: BUPIVACAINE
     Dosage: PATIENT MOTHER DOSE WAS 10ML OF 0.12% BUPIVACAINE
     Route: 064
  5. FUROSEMIDE [Suspect]
     Active Substance: FUROSEMIDE
     Indication: Product used for unknown indication
     Dosage: PATIENT MOTHER DOSE WAS 5 MG
     Route: 064
  6. CEFTRIAXONE [Suspect]
     Active Substance: CEFTRIAXONE
     Indication: Product used for unknown indication
     Dosage: PATIENT MOTHER DOSE WAS 1GRAM INJECTION
     Route: 064
  7. METOCLOPRAMIDE [Suspect]
     Active Substance: METOCLOPRAMIDE
     Indication: Product used for unknown indication
     Dosage: PATIENT MOTHER DOSE WAS 10 MILLIGRAM INJECTION
     Route: 064
  8. PANTOPRAZOLE [Suspect]
     Active Substance: PANTOPRAZOLE
     Indication: Product used for unknown indication
     Dosage: PATIENT MOTHER DOSE WAS 40 MILLIGRAM INJECTION
     Route: 064
  9. FENTANYL [Suspect]
     Active Substance: FENTANYL
     Indication: Product used for unknown indication
     Dosage: UNK
     Route: 064
  10. FENTANYL [Suspect]
     Active Substance: FENTANYL
     Dosage: PATIENT MOTHER DOSE WAS 50 MICROGRAMS
     Route: 064
  11. DEXAMETHASONE [Suspect]
     Active Substance: DEXAMETHASONE
     Indication: Product used for unknown indication
     Dosage: PATIENT MOTHER DOSE WAS 12 MG 12 HOURLY
     Route: 064
  12. LACTATED RINGERS SOLUTION [Suspect]
     Active Substance: CALCIUM CHLORIDE\POTASSIUM CHLORIDE\SODIUM CHLORIDE\SODIUM LACTATE
     Indication: Product used for unknown indication
     Dosage: PATIENT MOTHER DOSE WAS 500MILLILITRE AT A RATE OF 4 ML/KILOGRAM/HOUR
     Route: 064
  13. BUDESONIDE [Suspect]
     Active Substance: BUDESONIDE
     Indication: Product used for unknown indication
     Dosage: PATIENT MOTHER TOOK 4 HOURLY NEBULIZATION
     Route: 064
  14. HYDROCORTISONE [Suspect]
     Active Substance: HYDROCORTISONE
     Indication: Product used for unknown indication
     Dosage: PATIENT^S MOTHERS DOSE WAS 100 MILLIGRAM INJECTIONS
     Route: 064

REACTIONS (4)
  - Premature baby [Unknown]
  - Low birth weight baby [Unknown]
  - Foetal exposure during pregnancy [Unknown]
  - Foetal exposure during delivery [Unknown]
